FAERS Safety Report 9574549 (Version 2)
Quarter: 2013Q4

REPORT INFORMATION
  Report Type: Report from Study
  Country: JP (occurrence: JP)
  Receive Date: 20131001
  Receipt Date: 20131014
  Transmission Date: 20140711
  Serious: Yes (Death, Other)
  Sender: FDA-Public Use
  Company Number: JP-TAKEDA-2013TJP001316

PATIENT
  Age: 91 Year
  Sex: Male

DRUGS (13)
  1. LANSOPRAZOLE [Suspect]
     Indication: PROPHYLAXIS AGAINST GASTROINTESTINAL ULCER
     Dosage: 15 MG, QD
     Route: 048
     Dates: start: 20120706, end: 20121104
  2. BLOPRESS [Concomitant]
     Route: 048
  3. BLOPRESS [Concomitant]
     Route: 048
  4. BAYASPIRIN [Concomitant]
     Indication: THROMBOSIS PROPHYLAXIS
     Route: 048
  5. BAYASPIRIN [Concomitant]
     Route: 048
     Dates: end: 20121104
  6. LASIX                              /00032601/ [Concomitant]
     Route: 048
  7. ALDACTONE-A [Concomitant]
     Dosage: 25 MG, UNK
     Route: 048
  8. ALDACTONE-A [Concomitant]
     Route: 048
  9. SALOBEL [Concomitant]
     Dosage: 100 MG, UNK
     Route: 048
  10. SALOBEL [Concomitant]
     Route: 048
  11. MAINTATE [Concomitant]
     Dosage: 2.5 MG, UNK
     Route: 048
  12. MAINTATE [Concomitant]
     Route: 048
  13. LASIX                              /00032601/ [Concomitant]
     Route: 048

REACTIONS (2)
  - Death [Fatal]
  - Cardiac failure acute [Fatal]
